FAERS Safety Report 12466180 (Version 2)
Quarter: 2016Q3

REPORT INFORMATION
  Report Type: Spontaneous
  Country: DE (occurrence: DE)
  Receive Date: 20160614
  Receipt Date: 20160713
  Transmission Date: 20161109
  Serious: Yes (Hospitalization)
  Sender: FDA-Public Use
  Company Number: DE-BIOGEN-2016BI00248411

PATIENT
  Sex: Female

DRUGS (3)
  1. EUTHRYROX (LEVOTHYROXINE) [Concomitant]
     Indication: HYPOTHYROIDISM
     Route: 065
  2. VIGANTOLETTEN (COLECALCIFEROL) [Concomitant]
     Active Substance: CHOLECALCIFEROL
     Indication: PRODUCT USED FOR UNKNOWN INDICATION
     Route: 065
  3. TYSABRI [Suspect]
     Active Substance: NATALIZUMAB
     Indication: MULTIPLE SCLEROSIS
     Dosage: INFUSED OVER 1 HOUR
     Route: 042

REACTIONS (1)
  - Leukocytosis [Not Recovered/Not Resolved]
